FAERS Safety Report 16531058 (Version 17)
Quarter: 2020Q3

REPORT INFORMATION
  Report Type: Report from Study
  Country: CO (occurrence: CO)
  Receive Date: 20190704
  Receipt Date: 20200902
  Transmission Date: 20201102
  Serious: Yes (Hospitalization, Other)
  Sender: FDA-Public Use
  Company Number: PHHY2019CO152637

PATIENT
  Age: 41 Year
  Sex: Male
  Weight: 98 kg

DRUGS (10)
  1. VOTRIENT [Suspect]
     Active Substance: PAZOPANIB HYDROCHLORIDE
     Dosage: UNK
     Route: 048
     Dates: end: 20190619
  2. TRADJENTA [Concomitant]
     Active Substance: LINAGLIPTIN
     Indication: DIABETES MELLITUS
     Dosage: 5 MG, Q12H
     Route: 065
     Dates: start: 20170701
  3. VOTRIENT [Suspect]
     Active Substance: PAZOPANIB HYDROCHLORIDE
     Dosage: 800 MG, QD
     Route: 048
  4. VOTRIENT [Suspect]
     Active Substance: PAZOPANIB HYDROCHLORIDE
     Indication: METASTATIC RENAL CELL CARCINOMA
     Dosage: 2 DF, Q24H  (2 OF 400 MG/ 800 MG)
     Route: 048
     Dates: start: 20190301, end: 20190330
  5. VOTRIENT [Suspect]
     Active Substance: PAZOPANIB HYDROCHLORIDE
     Dosage: 2 DF, QD (2 OF 400 MG/ 800 MG)
     Route: 048
     Dates: start: 20190528
  6. METFORMIN [Suspect]
     Active Substance: METFORMIN HYDROCHLORIDE
     Indication: DIABETES MELLITUS
     Dosage: 850 MG, Q12H
     Route: 065
     Dates: start: 20170202
  7. LOSARTAN. [Suspect]
     Active Substance: LOSARTAN
     Indication: HYPERTENSION
     Dosage: 50 MG, Q12H (EVERY 12 HOURS)
     Route: 065
     Dates: start: 20170202
  8. AMLODIPINE [Suspect]
     Active Substance: AMLODIPINE BESYLATE
     Indication: PROPHYLAXIS
     Dosage: 10 MG, QD (ONCE EVERY 24 HOURS)
     Route: 065
     Dates: start: 20170202
  9. VOTRIENT [Suspect]
     Active Substance: PAZOPANIB HYDROCHLORIDE
     Dosage: 2 DF, QD (2 OF 400 MG/ 800 MG)
     Route: 048
     Dates: start: 20190618
  10. VOTRIENT [Suspect]
     Active Substance: PAZOPANIB HYDROCHLORIDE
     Dosage: UNK
     Route: 048
     Dates: start: 20190805

REACTIONS (20)
  - Haemorrhage [Unknown]
  - Tooth injury [Recovered/Resolved]
  - Abscess oral [Recovered/Resolved]
  - Blister [Unknown]
  - Hyperkeratosis [Unknown]
  - Blood pressure increased [Unknown]
  - Abscess oral [Recovered/Resolved]
  - Subcutaneous abscess [Unknown]
  - Furuncle [Unknown]
  - Gait disturbance [Unknown]
  - Burning sensation [Unknown]
  - Skin discolouration [Unknown]
  - Impaired healing [Unknown]
  - Cyst [Unknown]
  - Skin exfoliation [Unknown]
  - Nodule [Unknown]
  - Blood triglycerides increased [Unknown]
  - Hypoaesthesia oral [Unknown]
  - Tumour marker increased [Unknown]
  - Carbuncle [Unknown]

NARRATIVE: CASE EVENT DATE: 20190405
